FAERS Safety Report 19671859 (Version 2)
Quarter: 2021Q3

REPORT INFORMATION
  Report Type: Spontaneous
  Country: DE (occurrence: DE)
  Receive Date: 20210806
  Receipt Date: 20210827
  Transmission Date: 20211014
  Serious: Yes (Other)
  Sender: FDA-Public Use
  Company Number: NVSC2021DE172231

PATIENT
  Sex: Male

DRUGS (4)
  1. BROMAZANIL 6 MG [Suspect]
     Active Substance: BROMAZEPAM
     Indication: PRODUCT USED FOR UNKNOWN INDICATION
     Dosage: UNK
     Route: 065
  2. OXAZEPAM. [Suspect]
     Active Substance: OXAZEPAM
     Indication: PRODUCT USED FOR UNKNOWN INDICATION
     Dosage: 1 DF, BID (1?0?1)
     Route: 065
  3. BROMAZANIL 6 MG [Suspect]
     Active Substance: BROMAZEPAM
     Dosage: UNK (DOSE DECREASED)
     Route: 065
  4. OXAZEPAM. [Suspect]
     Active Substance: OXAZEPAM
     Dosage: UNK (DOSE INCREASED)
     Route: 065

REACTIONS (3)
  - Drug dependence [Unknown]
  - Drug intolerance [Unknown]
  - Wrong technique in product usage process [Unknown]
